FAERS Safety Report 19427053 (Version 1)
Quarter: 2021Q2

REPORT INFORMATION
  Report Type: Spontaneous
  Country: CA (occurrence: CA)
  Receive Date: 20210616
  Receipt Date: 20210616
  Transmission Date: 20210717
  Serious: Yes (Other)
  Sender: FDA-Public Use
  Company Number: CA-MALLINCKRODT-T202102583

PATIENT
  Age: 70 Year

DRUGS (1)
  1. UVADEX [Suspect]
     Active Substance: METHOXSALEN
     Indication: PRODUCT USED FOR UNKNOWN INDICATION
     Dosage: UNK, EXTRACORPOREAL
     Route: 050
     Dates: end: 20060316

REACTIONS (4)
  - Ventricular fibrillation [Unknown]
  - Pyrexia [Unknown]
  - Ejection fraction decreased [Unknown]
  - Myocardial infarction [Unknown]

NARRATIVE: CASE EVENT DATE: 20060316
